FAERS Safety Report 9303069 (Version 1)
Quarter: 2013Q1

REPORT INFORMATION
  Report Type: Spontaneous
  Country: DK (occurrence: None)
  Receive Date: 20130108
  Receipt Date: 20130108
  Transmission Date: 20140127
  Serious: Yes (Other)
  Sender: FDA-Public Use
  Company Number: 2012-22738

PATIENT
  Age: 36 Year
  Sex: Female

DRUGS (13)
  1. METFORMIN HYDROCHLORIDE (UNKNOWN) (METFORMIN HYDROCHLORIDE) UNK, UNKUNK [Suspect]
     Indication: TYPE 2 DIABETES MELLITUS
     Route: 048
     Dates: start: 2005
  2. METFORMIN HYDROCHLORIDE (UNKNOWN) (METFORMIN HYDROCHLORIDE) UNK, UNKUNK [Suspect]
     Route: 048
     Dates: start: 2005
  3. METFORMIN HYDROCHLORIDE (UNKNOWN) (METFORMIN HYDROCHLORIDE) UNK, UNKUNK [Suspect]
     Route: 048
     Dates: start: 2005
  4. METFORMIN HYDROCHLORIDE (UNKNOWN) (METFORMIN HYDROCHLORIDE) UNK, UNKUNK [Suspect]
     Route: 048
     Dates: start: 2005
  5. METFORMIN HYDROCHLORIDE (UNKNOWN) (METFORMIN HYDROCHLORIDE) UNK, UNKUNK [Suspect]
     Route: 048
     Dates: start: 2005
  6. METFORMIN HYDROCHLORIDE (UNKNOWN) (METFORMIN HYDROCHLORIDE) UNK, UNKUNK [Suspect]
     Route: 048
     Dates: start: 2005
  7. METFORMIN HYDROCHLORIDE (UNKNOWN) (METFORMIN HYDROCHLORIDE) UNK, UNKUNK [Suspect]
     Route: 048
     Dates: start: 2005
  8. SIMVASTATIN (UNKNOWN) (SIMVASTATIN) UNK, UNKUNK [Suspect]
     Route: 048
     Dates: start: 2006
  9. VANIQA [Suspect]
     Dosage: 500 MG, BID  TRIMEMESTER 1, ORAL
     Route: 061
     Dates: start: 20121015
  10. SPIRIX [Suspect]
     Route: 048
     Dates: start: 2011
  11. HJERTEMAGNYL /00228701 (ACETYLSALICYLIC ACID, MAGNESIUM OXIDE) [Suspect]
     Route: 048
     Dates: start: 2006
  12. YASMIN [Suspect]
     Route: 048
     Dates: start: 2009
  13. PINEX [Suspect]
     Route: 048

REACTIONS (3)
  - Abortion spontaneous [None]
  - Unintended pregnancy [None]
  - Maternal exposure during pregnancy [None]
